FAERS Safety Report 7781377-6 (Version None)
Quarter: 2011Q3

REPORT INFORMATION
  Report Type: 
  Country: None (occurrence: None)
  Receive Date: 20110927
  Receipt Date: 20110912
  Transmission Date: 20111222
  Serious: Yes (Other)
  Sender: FDA-Public Use
  Company Number: US-BAYER-2011-084232

PATIENT
  Age: 71 Year
  Sex: Female
  Weight: 68 kg

DRUGS (5)
  1. NAPROXEN (ALEVE) [Suspect]
     Dosage: COUNT SIZE 40S + 12S BONUS PK
     Route: 048
     Dates: start: 20110905
  2. NEXIUM [Concomitant]
  3. NIFEDIPINE [Concomitant]
  4. EFFEXOR [Concomitant]
  5. CRESTOR [Concomitant]

REACTIONS (6)
  - ERYTHEMA [None]
  - PAIN OF SKIN [None]
  - RASH GENERALISED [None]
  - HYPERSENSITIVITY [None]
  - PAIN IN EXTREMITY [None]
  - URTICARIA [None]
